FAERS Safety Report 8238306 (Version 4)
Quarter: 2013Q3

REPORT INFORMATION
  Report Type: Report from Study
  Country: AU (occurrence: AU)
  Receive Date: 20111109
  Receipt Date: 20130718
  Transmission Date: 20140515
  Serious: Yes (Life-Threatening, Hospitalization, Other)
  Sender: FDA-Public Use
  Company Number: PHHO2011AU06834

PATIENT
  Age: 53 Year
  Sex: Male
  Weight: 65 kg

DRUGS (9)
  1. EVEROLIMUS [Suspect]
     Indication: LIVER TRANSPLANT
     Dosage: 1 MG, BID
     Route: 048
     Dates: start: 20091109, end: 20110415
  2. TACROLIMUS [Suspect]
     Indication: LIVER TRANSPLANT
     Dosage: 1MG AM, 0.5MG PM
     Route: 048
     Dates: start: 20091007, end: 20110415
  3. FLUCONAZOLE [Suspect]
     Dosage: UNK
     Dates: start: 20110329
  4. CIPROFLOXACIN ^BIOCHEMIE^ [Suspect]
     Dosage: UNK
     Dates: start: 20110329
  5. CALTRATE [Concomitant]
     Indication: MINERAL SUPPLEMENTATION
     Dosage: 1 TSP, QD
     Dates: start: 20091019
  6. COLECALCIFEROL [Concomitant]
     Indication: VITAMIN SUPPLEMENTATION
     Dosage: 25 UG, QD
     Dates: start: 20091019
  7. SOMAC [Concomitant]
     Indication: PROPHYLAXIS
     Dosage: 40 MG, QD
     Dates: start: 20091007
  8. TEMAZEPAM [Concomitant]
     Indication: SLEEP DISORDER THERAPY
     Dosage: 10 MG, UNK
     Dates: start: 20091022
  9. DIURETICS [Concomitant]

REACTIONS (6)
  - Renal failure [Not Recovered/Not Resolved]
  - Wound abscess [Not Recovered/Not Resolved]
  - Tendonitis [Not Recovered/Not Resolved]
  - Abscess [Not Recovered/Not Resolved]
  - Tremor [Recovered/Resolved]
  - Lethargy [Recovered/Resolved]
